FAERS Safety Report 20567617 (Version 3)
Quarter: 2022Q2

REPORT INFORMATION
  Report Type: Spontaneous
  Country: US (occurrence: US)
  Receive Date: 20220308
  Receipt Date: 20220412
  Transmission Date: 20220721
  Serious: No
  Sender: FDA-Public Use
  Company Number: US-PFIZER INC-202200328075

PATIENT
  Age: 66 Year
  Sex: Male

DRUGS (2)
  1. INLYTA [Suspect]
     Active Substance: AXITINIB
     Dosage: 5 MG, 2X/DAY
     Route: 048
     Dates: start: 20220214
  2. SUTENT [Concomitant]
     Active Substance: SUNITINIB MALATE
     Dosage: UNK

REACTIONS (10)
  - Stomatitis [Unknown]
  - Fatigue [Not Recovered/Not Resolved]
  - Dysphonia [Unknown]
  - Constipation [Unknown]
  - Blood pressure increased [Unknown]
  - Urine abnormality [Unknown]
  - Protein urine present [Unknown]
  - Diarrhoea [Unknown]
  - Dry skin [Unknown]
  - Blood glucose increased [Not Recovered/Not Resolved]

NARRATIVE: CASE EVENT DATE: 20220201
